FAERS Safety Report 5265778-6 (Version None)
Quarter: 2007Q1

REPORT INFORMATION
  Report Type: 
  Country: None (occurrence: None)
  Receive Date: 20061213
  Receipt Date: 20041221
  Transmission Date: 20070707
  Serious: Yes (Other)
  Sender: FDA-Public Use
  Company Number: 2004UW25956

PATIENT
  Age: 49 Year
  Sex: Female

DRUGS (1)
  1. IRESSA [Suspect]

REACTIONS (4)
  - ALOPECIA [None]
  - ASTHENIA [None]
  - ONYCHOCLASIS [None]
  - RASH [None]
